FAERS Safety Report 8244933-7 (Version None)
Quarter: 2012Q1

REPORT INFORMATION
  Report Type: 
  Country: None (occurrence: None)
  Receive Date: 20120329
  Receipt Date: 20110921
  Transmission Date: 20120608
  Serious: No
  Sender: FDA-Public Use
  Company Number: US-MYLANLABS-2011S1020008

PATIENT
  Age: 52 Year
  Sex: Female

DRUGS (4)
  1. FENTANYL-100 [Suspect]
     Indication: PAIN
     Dosage: CHANGED Q48H
     Route: 062
  2. OXYCODONE HCL [Concomitant]
     Dosage: Q6HR PRN
     Route: 048
  3. OXYCONTIN [Concomitant]
     Route: 048
  4. ATIVAN [Concomitant]
     Route: 048

REACTIONS (3)
  - PAIN [None]
  - DRUG WITHDRAWAL SYNDROME [None]
  - DRUG EFFECT DECREASED [None]
